FAERS Safety Report 8509437-2 (Version None)
Quarter: 2012Q3

REPORT INFORMATION
  Report Type: 
  Country: None (occurrence: None)
  Receive Date: 20120713
  Receipt Date: 20120711
  Transmission Date: 20120928
  Serious: Yes (Hospitalization)
  Sender: FDA-Public Use
  Company Number: FR-ROCHE-1087302

PATIENT
  Age: 38 Year
  Sex: Female

DRUGS (3)
  1. INCIVO [Suspect]
     Indication: HEPATITIS C
     Route: 048
     Dates: start: 20111118, end: 20120113
  2. RIBAVIRIN [Suspect]
     Indication: HEPATITIS C
     Route: 048
     Dates: end: 20120504
  3. PEGASYS [Suspect]
     Indication: HEPATITIS C
     Dates: end: 20120504

REACTIONS (1)
  - LYMPHADENOPATHY MEDIASTINAL [None]
